FAERS Safety Report 26110902 (Version 2)
Quarter: 2025Q4

REPORT INFORMATION
  Report Type: Spontaneous
  Country: JP (occurrence: JP)
  Receive Date: 20251202
  Receipt Date: 20251223
  Transmission Date: 20260117
  Serious: Yes (Life-Threatening, Other)
  Sender: VERICEL
  Company Number: JP-VERICEL-JP-VCEL-25-000413

PATIENT
  Age: 64 Year
  Sex: Male
  Weight: 63 kg

DRUGS (5)
  1. BROMELAINS [Suspect]
     Active Substance: BROMELAINS
     Indication: Burns second degree
     Dosage: UNK, SINGLE
     Route: 061
     Dates: start: 20241004, end: 20241004
  2. LINEZOLID [Concomitant]
     Active Substance: LINEZOLID
     Indication: Sepsis
     Dosage: 600 MILLIGRAM, BID
     Route: 042
     Dates: start: 20241004, end: 20241008
  3. CEFAZOLIN SODIUM [Concomitant]
     Active Substance: CEFAZOLIN SODIUM
     Indication: Sepsis
     Dosage: 1 GRAM, Q8H
     Route: 042
     Dates: start: 20241004, end: 20241004
  4. NOREPINEPHRINE [Concomitant]
     Active Substance: NOREPINEPHRINE
     Indication: Blood pressure increased
     Dosage: UNK
     Route: 042
     Dates: start: 20241004, end: 20241005
  5. VASOPRESSIN [Concomitant]
     Active Substance: VASOPRESSIN
     Indication: Blood pressure increased
     Dosage: UNK
     Route: 042
     Dates: start: 20241004, end: 20241004

REACTIONS (3)
  - Shock [Recovered/Resolved]
  - Acute kidney injury [Recovered/Resolved]
  - Pyrexia [Recovered/Resolved]

NARRATIVE: CASE EVENT DATE: 20241004
